FAERS Safety Report 5491992-0 (Version None)
Quarter: 2007Q4

REPORT INFORMATION
  Report Type: 
  Country: None (occurrence: None)
  Receive Date: 20071022
  Receipt Date: 20071016
  Transmission Date: 20080405
  Serious: Yes (Life-Threatening, Hospitalization)
  Sender: FDA-Public Use
  Company Number: B0485667A

PATIENT
  Age: 36 Year
  Sex: Female
  Weight: 70 kg

DRUGS (3)
  1. PAXIL [Suspect]
     Indication: DEPRESSION
     Route: 048
     Dates: start: 20070830
  2. VEGETAMIN A [Concomitant]
     Indication: SUICIDE ATTEMPT
     Route: 048
     Dates: start: 20070830, end: 20070830
  3. FLUNITRAZEPAM [Concomitant]
     Indication: SUICIDE ATTEMPT
     Dosage: 116MG PER DAY
     Route: 048
     Dates: start: 20070830, end: 20070830

REACTIONS (6)
  - DYSARTHRIA [None]
  - INTENTIONAL OVERDOSE [None]
  - MIGRAINE [None]
  - MYDRIASIS [None]
  - SOMNOLENCE [None]
  - SUICIDE ATTEMPT [None]
